FAERS Safety Report 23757798 (Version 1)
Quarter: 2024Q2

REPORT INFORMATION
  Report Type: Spontaneous
  Country: US (occurrence: None)
  Receive Date: 20240418
  Receipt Date: 20240418
  Transmission Date: 20240715
  Serious: Yes (Life-Threatening)
  Sender: FDA-Public Use
  Company Number: None

PATIENT
  Age: 68 Year
  Sex: Female
  Weight: 104.33 kg

DRUGS (11)
  1. OZEMPIC [Suspect]
     Active Substance: SEMAGLUTIDE
     Indication: Weight control
     Dosage: 1 MG ONCE A WEEK INJECTION
     Dates: start: 202301, end: 202401
  2. ALBUTEROL [Concomitant]
     Active Substance: ALBUTEROL
     Dosage: 1 MG ONCE A WEEK INJECTION
     Dates: start: 202301, end: 202401
  3. ELIQUIS [Concomitant]
     Active Substance: APIXABAN
     Dosage: 1 MG ONCE A WEEK INJECTION
     Dates: start: 202301, end: 202401
  4. HYDROXYZINE [Concomitant]
     Dosage: 1 MG ONCE A WEEK INJECTION
     Dates: start: 202301, end: 202401
  5. LEVOTHYROXINE [Concomitant]
     Active Substance: LEVOTHYROXINE\LEVOTHYROXINE SODIUM
     Dosage: 1 MG ONCE A WEEK INJECTION
     Dates: start: 202301, end: 202401
  6. esciralo pram [Concomitant]
     Dosage: 1 MG ONCE A WEEK INJECTION
     Dates: start: 202301, end: 202401
  7. ALPRAZOLAM [Concomitant]
     Dosage: 1 MG ONCE A WEEK INJECTION
     Dates: start: 202301, end: 202401
  8. ZINC [Concomitant]
     Active Substance: PYRITHIONE ZINC\ZINC\ZINC CHLORIDE
  9. VITAMIN D3 [Concomitant]
     Active Substance: CHOLECALCIFEROL
  10. VITAMIN B12 [Concomitant]
     Active Substance: CYANOCOBALAMIN
  11. PYRIDOXINE HYDROCHLORIDE [Concomitant]
     Active Substance: PYRIDOXINE HYDROCHLORIDE

REACTIONS (3)
  - Nausea [None]
  - Blood calcium increased [None]
  - Neoplasm [None]

NARRATIVE: CASE EVENT DATE: 20231201
